FAERS Safety Report 6170643-6 (Version None)
Quarter: 2009Q2

REPORT INFORMATION
  Report Type: 
  Country: None (occurrence: None)
  Receive Date: 20090428
  Receipt Date: 20090422
  Transmission Date: 20091009
  Serious: Yes (Other)
  Sender: FDA-Public Use
  Company Number: US-ELI_LILLY_AND_COMPANY-US200902003779

PATIENT
  Sex: Female

DRUGS (2)
  1. FORTEO [Suspect]
     Dosage: 20 UG, DAILY (1/D)
     Dates: start: 20081105
  2. CHANTIX                            /05703001/ [Concomitant]
     Indication: SMOKING CESSATION THERAPY
     Dates: start: 20090105

REACTIONS (1)
  - OPTIC ISCHAEMIC NEUROPATHY [None]
